FAERS Safety Report 4902596-X (Version None)
Quarter: 2006Q1

REPORT INFORMATION
  Report Type: 
  Country: None (occurrence: None)
  Receive Date: 20060207
  Receipt Date: 20050128
  Transmission Date: 20060701
  Serious: Yes (Hospitalization, Disabling)
  Sender: FDA-Public Use
  Company Number: US-ROCHE-394188

PATIENT
  Age: 18 Year
  Sex: Male
  Weight: 66.2 kg

DRUGS (3)
  1. ACCUTANE [Suspect]
     Indication: ACNE
     Dosage: 20MG CAPSULES.  TWO TAKEN IN THE MORNING AND ONE IN THE EVENING.
     Route: 048
     Dates: start: 19990806, end: 19991130
  2. ACCUTANE [Suspect]
     Route: 048
     Dates: start: 19991201, end: 19991229
  3. ACCUTANE [Suspect]
     Route: 048
     Dates: start: 20020602, end: 20021203

REACTIONS (28)
  - ABDOMINAL ABSCESS [None]
  - ANAL FISSURE [None]
  - BLOOD BILIRUBIN INCREASED [None]
  - BLOOD SODIUM DECREASED [None]
  - C-REACTIVE PROTEIN DECREASED [None]
  - COUGH [None]
  - CROHN'S DISEASE [None]
  - DEHYDRATION [None]
  - DEPRESSION [None]
  - DERMATITIS [None]
  - DRUG INEFFECTIVE [None]
  - GASTROINTESTINAL DISORDER [None]
  - HAEMATOCRIT DECREASED [None]
  - HAEMOGLOBIN DECREASED [None]
  - HAEMOGLOBIN INCREASED [None]
  - ILEAL STENOSIS [None]
  - ILEITIS [None]
  - INFLAMMATORY BOWEL DISEASE [None]
  - INTESTINAL FISTULA [None]
  - INTESTINAL HAEMORRHAGE [None]
  - MULTI-ORGAN DISORDER [None]
  - PELVIC ABSCESS [None]
  - PERITONITIS [None]
  - PHARYNGITIS [None]
  - RECTAL HAEMORRHAGE [None]
  - SKIN HYPERPIGMENTATION [None]
  - SMALL INTESTINAL OBSTRUCTION [None]
  - WOUND INFECTION STAPHYLOCOCCAL [None]
